FAERS Safety Report 8514012-X (Version None)
Quarter: 2012Q3

REPORT INFORMATION
  Report Type: 
  Country: None (occurrence: None)
  Receive Date: 20120717
  Receipt Date: 20120706
  Transmission Date: 20120928
  Serious: Yes (Hospitalization)
  Sender: FDA-Public Use
  Company Number: JP-009507513-1205USA02321

PATIENT

DRUGS (4)
  1. SITAGLIPTIN PHOSPHATE [Suspect]
     Indication: TYPE 2 DIABETES MELLITUS
     Dosage: 50 MG, QD
     Route: 048
     Dates: start: 20110301, end: 20111115
  2. METFORMIN HYDROCHLORIDE [Concomitant]
     Dosage: DOSAGE IS UNCERTAIN DURING A DAY
     Route: 048
     Dates: start: 20080301
  3. ACARBOSE [Concomitant]
     Dosage: DOSAGE IS UNCERTAIN DURING A DAY
     Route: 048
     Dates: start: 20080301
  4. LIPIDIL [Concomitant]
     Dosage: UNK
     Dates: start: 20080301

REACTIONS (3)
  - SYSTEMIC INFLAMMATORY RESPONSE SYNDROME [None]
  - PANCREATITIS ACUTE [None]
  - CHOLELITHIASIS [None]
